FAERS Safety Report 8291187-1 (Version None)
Quarter: 2012Q2

REPORT INFORMATION
  Report Type: 
  Country: None (occurrence: None)
  Receive Date: 20120417
  Receipt Date: 20120410
  Transmission Date: 20120825
  Serious: No
  Sender: FDA-Public Use
  Company Number: US-B.I. PHARMACEUTICALS,INC./RIDGEFIELD-2012-BP-06745BP

PATIENT
  Sex: Female

DRUGS (3)
  1. PRADAXA [Concomitant]
     Indication: ATRIAL FIBRILLATION
     Route: 048
  2. SPIRIVA [Suspect]
     Indication: EMPHYSEMA
     Dosage: 18 MCG
     Route: 055
     Dates: start: 20110101
  3. OXYGEN [Concomitant]
     Indication: EMPHYSEMA
     Route: 045

REACTIONS (3)
  - SWELLING FACE [None]
  - SWOLLEN TONGUE [None]
  - SPUTUM INCREASED [None]
